FAERS Safety Report 4667261-5 (Version None)
Quarter: 2005Q2

REPORT INFORMATION
  Report Type: 
  Country: None (occurrence: None)
  Receive Date: 20050520
  Receipt Date: 20040830
  Transmission Date: 20051028
  Serious: Yes (Other)
  Sender: FDA-Public Use
  Company Number: PHEH2004US09384

PATIENT
  Age: 80 Year
  Sex: Male
  Weight: 41 kg

DRUGS (2)
  1. ZOMETA [Suspect]
     Indication: MULTIPLE MYELOMA
     Dosage: 4 MG, QMO
     Route: 042
     Dates: start: 20010101, end: 20040610
  2. INTERFERON [Concomitant]
     Dates: start: 19990101

REACTIONS (1)
  - ASEPTIC NECROSIS BONE [None]
